FAERS Safety Report 16828311 (Version 2)
Quarter: 2019Q4

REPORT INFORMATION
  Report Type: Spontaneous
  Country: US (occurrence: US)
  Receive Date: 20190919
  Receipt Date: 20191121
  Transmission Date: 20200122
  Serious: Yes (Other)
  Sender: FDA-Public Use
  Company Number: US-ARRAY-2019-05886

PATIENT

DRUGS (4)
  1. BRAFTOVI [Suspect]
     Active Substance: ENCORAFENIB
     Dosage: 225 MG, QD
     Route: 048
     Dates: start: 20190606
  2. MEKTOVI [Suspect]
     Active Substance: BINIMETINIB
     Indication: METASTASIS
     Dosage: 30 MG, BID
     Route: 048
     Dates: start: 20190606
  3. MEKTOVI [Suspect]
     Active Substance: BINIMETINIB
     Dosage: 45 MG, BID
     Route: 048
     Dates: start: 20190607, end: 20190616
  4. BRAFTOVI [Suspect]
     Active Substance: ENCORAFENIB
     Indication: METASTASIS
     Dosage: 450 MG, QD
     Route: 048
     Dates: start: 20190607, end: 20190616

REACTIONS (13)
  - Tremor [Unknown]
  - Hypersensitivity [Unknown]
  - Rash [Unknown]
  - Skin discolouration [Unknown]
  - Joint stiffness [Unknown]
  - Muscle tightness [Unknown]
  - Off label use [Unknown]
  - Haematochezia [Unknown]
  - Alopecia [Unknown]
  - Hypoaesthesia [Unknown]
  - Pyrexia [Unknown]
  - Balance disorder [Unknown]
  - Constipation [Unknown]

NARRATIVE: CASE EVENT DATE: 20190606
